FAERS Safety Report 7559499-4 (Version None)
Quarter: 2011Q2

REPORT INFORMATION
  Report Type: 
  Country: None (occurrence: None)
  Receive Date: 20110621
  Receipt Date: 20110607
  Transmission Date: 20111010
  Serious: Yes (Other)
  Sender: FDA-Public Use
  Company Number: GB-JNJFOC-20110502151

PATIENT
  Age: 41 Year
  Sex: Female

DRUGS (4)
  1. REMICADE [Suspect]
     Indication: CROHN'S DISEASE
     Route: 042
     Dates: start: 20110503
  2. HYDROCORTISONE [Concomitant]
     Indication: PREMEDICATION
     Dates: start: 20110503
  3. REMICADE [Suspect]
     Route: 042
     Dates: start: 20080101
  4. REMICADE [Suspect]
     Route: 042
     Dates: start: 20110419

REACTIONS (10)
  - DYSPNOEA [None]
  - CHEST DISCOMFORT [None]
  - ABDOMINAL PAIN [None]
  - NAUSEA [None]
  - FLUSHING [None]
  - INFUSION RELATED REACTION [None]
  - PAIN [None]
  - TACHYCARDIA [None]
  - DYSURIA [None]
  - URTICARIA [None]
